FAERS Safety Report 19054396 (Version 1)
Quarter: 2021Q1

REPORT INFORMATION
  Report Type: Spontaneous
  Country: DE (occurrence: DE)
  Receive Date: 20210325
  Receipt Date: 20210325
  Transmission Date: 20210420
  Serious: Yes (Hospitalization)
  Sender: FDA-Public Use
  Company Number: DE-TEVA-2021-DE-1892859

PATIENT
  Age: 56 Year
  Sex: Female
  Weight: 74 kg

DRUGS (10)
  1. COLECALCIFEROL (VITAMIN D) [Concomitant]
     Active Substance: CHOLECALCIFEROL
     Dosage: 1000 IU (INTERNATIONAL UNIT) DAILY; 1?0?0?0
  2. METHOTREXAT [Suspect]
     Active Substance: METHOTREXATE
     Dosage: 10 MG, LAST ON DECEMBER 19, 2020
     Dates: end: 20201219
  3. SIMVASTATIN. [Concomitant]
     Active Substance: SIMVASTATIN
     Dosage: 10 MG, DISCONTINUED ON DECEMBER 28, 2020
     Dates: end: 20201228
  4. OPIPRAMOL [Concomitant]
     Active Substance: OPIPRAMOL
     Dosage: 50 MG, DISCONTINUED ON DECEMBER 28, 2020
     Dates: end: 20201228
  5. FOLSAURE [Concomitant]
     Active Substance: FOLIC ACID
     Dosage: LAST ON DECEMBER 19, 2020
     Dates: end: 20201219
  6. PREDNISOLON [Concomitant]
     Active Substance: PREDNISOLONE
     Dosage: .5 DOSAGE FORMS DAILY; 5 MG, 0.5?0?0?0
  7. NEUPRO [Concomitant]
     Active Substance: ROTIGOTINE
     Dosage: 4 MILLIGRAM DAILY; 1X, TRANSDERMAL PATCH
     Route: 062
  8. BENAZEPRIL [Concomitant]
     Active Substance: BENAZEPRIL HYDROCHLORIDE
     Dosage: .5 MILLIGRAM DAILY; 5 MG, 0.5?0?0?0
  9. RESTEX 100MG/25MG [Concomitant]
     Dosage: 25 | 100 MG, DISCONTINUED ON DECEMBER 28, 2020, 1DF
     Dates: end: 20201228
  10. BENSERAZID/LEVODOPA [Concomitant]
     Active Substance: BENSERAZIDE\LEVODOPA
     Dosage: 25 | 1200 MG, DISCONTINUED ON DECEMBER 28, 2020, 1DF
     Dates: end: 20201228

REACTIONS (1)
  - Transaminases increased [Unknown]

NARRATIVE: CASE EVENT DATE: 20201228
